FAERS Safety Report 25201840 (Version 1)
Quarter: 2025Q2

REPORT INFORMATION
  Report Type: Spontaneous
  Country: GB (occurrence: GB)
  Receive Date: 20250416
  Receipt Date: 20250416
  Transmission Date: 20250716
  Serious: Yes (Hospitalization)
  Sender: AMGEN
  Company Number: GB-AMGEN-GBRSP2025071875

PATIENT
  Sex: Female

DRUGS (1)
  1. NPLATE [Suspect]
     Active Substance: ROMIPLOSTIM
     Indication: Neoplasm malignant
     Dosage: 250 MILLIGRAM (0.25MG INJ), QWK
     Route: 058
     Dates: start: 20241206

REACTIONS (1)
  - Terminal state [Unknown]
